FAERS Safety Report 17625025 (Version 1)
Quarter: 2020Q2

REPORT INFORMATION
  Report Type: Report from Study
  Country: None (occurrence: US)
  Receive Date: 20200403
  Receipt Date: 20200403
  Transmission Date: 20200713
  Serious: Yes (Death)
  Sender: FDA-Public Use
  Company Number: US-HLS-202000029

PATIENT
  Age: 58 Year
  Sex: Male
  Weight: 64 kg

DRUGS (18)
  1. TAMSULOSIN [Concomitant]
     Active Substance: TAMSULOSIN
     Dosage: 0.4 MG= 1 CAP
     Route: 048
  2. LACTULOSE. [Concomitant]
     Active Substance: LACTULOSE
     Dosage: 10G=15ML
     Route: 048
  3. DEPAKOTE [Concomitant]
     Active Substance: DIVALPROEX SODIUM
     Dosage: EXTENDED RELEASE?1500 MG=3 TAB AT BEDTIME
     Route: 048
  4. NICOTINE. [Concomitant]
     Active Substance: NICOTINE
     Dosage: 21MG/24 HR EXTENDED RELEASE
     Route: 065
  5. IBUPROFEN. [Concomitant]
     Active Substance: IBUPROFEN
     Dosage: 1 TAB Q6HR PRN
     Route: 048
  6. ATORVASTATIN [Concomitant]
     Active Substance: ATORVASTATIN
     Dosage: AT BEDTIME
     Route: 048
  7. LORAZEPAM. [Concomitant]
     Active Substance: LORAZEPAM
     Dosage: 1 MG=1 TAB AT BEDTIME
     Route: 048
  8. ACETAMINOPHEN. [Concomitant]
     Active Substance: ACETAMINOPHEN
     Dosage: 2 PRN EVERY 4 HOURS
     Route: 048
  9. SENNA [Concomitant]
     Active Substance: SENNA LEAF\SENNOSIDES\SENNOSIDES A AND B
     Dosage: 8.6 MG, 17.2 MG = 2 TAB, DAILY
     Route: 048
  10. PROCTOZONE [Concomitant]
     Active Substance: HYDROCORTISONE
     Dosage: 2.5 % A APP TID PRN
     Route: 054
  11. DEXAMETHASONE. [Concomitant]
     Active Substance: DEXAMETHASONE
     Dosage: BID
     Route: 048
  12. OMEPRAZOLE. [Concomitant]
     Active Substance: OMEPRAZOLE
     Dosage: 20 MG = 1 CAP
     Route: 048
  13. CLOZAPINE. [Suspect]
     Active Substance: CLOZAPINE
     Indication: SCHIZOPHRENIA
     Dosage: QHS (1-100MG AND 3-200MG) AT BEDTIME?STARTED PRIOR TO 2005
     Route: 048
  14. METOCLOPRAMIDE. [Concomitant]
     Active Substance: METOCLOPRAMIDE
     Dosage: 5 MG = 1 TAB AT BEDTIME
     Route: 048
  15. DOCUSATE [Concomitant]
     Active Substance: DOCUSATE
     Dosage: 200 MG=2 TAB BID
     Route: 048
  16. VRAYLAR [Concomitant]
     Active Substance: CARIPRAZINE
     Dosage: 1.5 MG=1 CAP?3 MG=1 CAP
     Route: 048
  17. CALCIUM CARBONATE. [Concomitant]
     Active Substance: CALCIUM CARBONATE
     Dosage: ELEMENTATL CA 200MG)?1000MG=2 TAB, CHEWED Q 4 HR PRN
     Route: 048
  18. ASPIRIN. [Concomitant]
     Active Substance: ASPIRIN
     Route: 048

REACTIONS (2)
  - Neutrophil count increased [Recovered/Resolved]
  - Lung neoplasm [Fatal]

NARRATIVE: CASE EVENT DATE: 201902
